FAERS Safety Report 9984995 (Version 2)
Quarter: 2015Q1

REPORT INFORMATION
  Report Type: Report from Study
  Country: US (occurrence: US)
  Receive Date: 20140307
  Receipt Date: 20150219
  Transmission Date: 20150721
  Serious: No
  Sender: FDA-Public Use
  Company Number: US-ABBVIE-14P-163-1186423-00

PATIENT
  Age: 49 Year
  Sex: Female

DRUGS (16)
  1. METHOTREXATE [Concomitant]
     Active Substance: METHOTREXATE
     Indication: PRODUCT USED FOR UNKNOWN INDICATION
     Dates: start: 20140107
  2. PREDNISONE. [Concomitant]
     Active Substance: PREDNISONE
     Route: 048
  3. TRAMADOLO [Concomitant]
     Active Substance: TRAMADOL
     Indication: SPONDYLITIS
  4. CLONAZEPAM. [Concomitant]
     Active Substance: CLONAZEPAM
     Indication: ANXIETY
     Dosage: 1/2 TO 1 TAB BID
     Route: 048
  5. METHOTREXATE [Concomitant]
     Active Substance: METHOTREXATE
     Dates: start: 2014
  6. HUMIRA [Suspect]
     Active Substance: ADALIMUMAB
     Dates: start: 20140107
  7. PREDNISONE. [Suspect]
     Active Substance: PREDNISONE
     Indication: PRODUCT USED FOR UNKNOWN INDICATION
  8. CYCLOBENZAPRINE [Suspect]
     Active Substance: CYCLOBENZAPRINE
     Indication: MUSCLE RELAXANT THERAPY
     Route: 048
  9. HUMIRA [Suspect]
     Active Substance: ADALIMUMAB
     Indication: PSORIATIC ARTHROPATHY
     Dates: start: 20131031
  10. FOLIC ACID. [Concomitant]
     Active Substance: FOLIC ACID
     Indication: VITAMIN SUPPLEMENTATION
  11. HYDROCODONE [Concomitant]
     Active Substance: HYDROCODONE
     Indication: PAIN
     Route: 048
  12. PREDNISONE. [Concomitant]
     Active Substance: PREDNISONE
     Indication: PAIN
     Route: 048
     Dates: start: 20140107
  13. PREDNISONE. [Concomitant]
     Active Substance: PREDNISONE
     Route: 048
  14. METHOTREXATE [Concomitant]
     Active Substance: METHOTREXATE
  15. METHOTREXATE [Concomitant]
     Active Substance: METHOTREXATE
     Dates: start: 2014
  16. FOLIC ACID. [Concomitant]
     Active Substance: FOLIC ACID

REACTIONS (34)
  - Oral pain [Recovered/Resolved]
  - Influenza [Unknown]
  - Back pain [Unknown]
  - Injection site bruising [Recovered/Resolved]
  - Gastroenteritis viral [Not Recovered/Not Resolved]
  - Spondylitis [Not Recovered/Not Resolved]
  - Arthralgia [Unknown]
  - Inappropriate schedule of drug administration [Unknown]
  - Irritability [Unknown]
  - Oesophagitis [Recovered/Resolved]
  - Headache [Unknown]
  - Anxiety [Unknown]
  - Pain [Not Recovered/Not Resolved]
  - Musculoskeletal pain [Unknown]
  - Ear infection [Unknown]
  - Migraine with aura [Recovering/Resolving]
  - Upper respiratory tract infection [Unknown]
  - Musculoskeletal pain [Not Recovered/Not Resolved]
  - Fatigue [Unknown]
  - Intraocular pressure increased [Unknown]
  - Nasal discomfort [Unknown]
  - Uveitis [Not Recovered/Not Resolved]
  - Uveitis [Not Recovered/Not Resolved]
  - Drug ineffective [Unknown]
  - Nasopharyngitis [Unknown]
  - Sinusitis [Unknown]
  - Muscle spasms [Not Recovered/Not Resolved]
  - Pain [Unknown]
  - Fibromyalgia [Not Recovered/Not Resolved]
  - Mydriasis [Unknown]
  - Headache [Unknown]
  - Muscle spasms [Not Recovered/Not Resolved]
  - Dizziness [Unknown]
  - Rhinalgia [Unknown]

NARRATIVE: CASE EVENT DATE: 201309
